FAERS Safety Report 7704737-8 (Version None)
Quarter: 2011Q3

REPORT INFORMATION
  Report Type: 
  Country: None (occurrence: None)
  Receive Date: 20110823
  Receipt Date: 20110815
  Transmission Date: 20111222
  Serious: Yes (Death, Hospitalization)
  Sender: FDA-Public Use
  Company Number: JP-BRISTOL-MYERS SQUIBB COMPANY-15950611

PATIENT
  Age: 76 Year
  Sex: Male

DRUGS (17)
  1. MAINTENANCE MEDIUM [Concomitant]
     Dosage: INJECTION SOLDEM
  2. KETALAR [Concomitant]
     Dosage: INJECTION
  3. KENTAN [Concomitant]
  4. LANSOPRAZOLE [Concomitant]
  5. MORPHINE [Concomitant]
  6. THYROID TAB [Concomitant]
     Dosage: THYRADIN
  7. ALPRAZOLAM [Concomitant]
     Dosage: TABLET
  8. METILON [Concomitant]
  9. LACTEC [Concomitant]
     Dosage: INJECTION
  10. ALFACALCIDOL [Concomitant]
     Dosage: CALFINA
  11. MILMAG [Concomitant]
  12. VITAMEDIN [Concomitant]
  13. MUCODYNE [Concomitant]
  14. ABILIFY [Suspect]
     Route: 048
  15. ZOSYN [Suspect]
     Route: 041
  16. BETAMETHASONE [Concomitant]
  17. LAC-B [Concomitant]
     Dosage: ORAL POWDER
     Route: 048

REACTIONS (1)
  - GRANULOCYTE COUNT DECREASED [None]
